FAERS Safety Report 14099056 (Version 4)
Quarter: 2017Q4

REPORT INFORMATION
  Report Type: Spontaneous
  Country: JP (occurrence: JP)
  Receive Date: 20171017
  Receipt Date: 20171102
  Transmission Date: 20180321
  Serious: Yes (Death, Hospitalization)
  Sender: FDA-Public Use
  Company Number: JP-ELI_LILLY_AND_COMPANY-JP201710004441

PATIENT
  Age: 70 Year
  Sex: Male
  Weight: 44 kg

DRUGS (9)
  1. CALONAL [Suspect]
     Active Substance: ACETAMINOPHEN
     Indication: CANCER PAIN
     Dosage: UNK
     Route: 048
     Dates: start: 20170208, end: 20170927
  2. CYRAMZA [Suspect]
     Active Substance: RAMUCIRUMAB
     Indication: COLON CANCER RECURRENT
     Dosage: 400 MG, CYCLICAL
     Route: 042
     Dates: start: 20170802, end: 20170927
  3. VOLTAREN [Suspect]
     Active Substance: DICLOFENAC SODIUM
     Indication: CANCER PAIN
     Dosage: 25 MG, BID
     Route: 054
     Dates: start: 20170725, end: 20170927
  4. IRINOTECAN [Concomitant]
     Active Substance: IRINOTECAN
     Indication: COLON CANCER RECURRENT
     Dosage: 100 MG, CYCLICAL
     Route: 042
     Dates: start: 20170802, end: 20170927
  5. TAKEPRON [Concomitant]
     Active Substance: LANSOPRAZOLE
     Indication: PROPHYLAXIS AGAINST GASTROINTESTINAL ULCER
     Dosage: UNK
     Route: 048
     Dates: start: 20170330, end: 20170927
  6. LYRICA [Concomitant]
     Active Substance: PREGABALIN
     Indication: CANCER PAIN
     Dosage: UNK
     Route: 048
     Dates: start: 20170412, end: 20170927
  7. LEVOFOLINATE CALCIUM [Concomitant]
     Active Substance: LEVOLEUCOVORIN CALCIUM
     Indication: COLON CANCER RECURRENT
     Dosage: 300 MG, CYCLICAL
     Route: 042
     Dates: start: 20170802, end: 20170927
  8. FLUOROURACIL. [Concomitant]
     Active Substance: FLUOROURACIL
     Indication: COLON CANCER RECURRENT
     Dosage: 300 MG, CYCLICAL
     Route: 042
     Dates: start: 20170802, end: 20170927
  9. DUROTEP [Concomitant]
     Active Substance: FENTANYL
     Indication: CANCER PAIN
     Dosage: UNK
     Route: 062
     Dates: start: 20170715, end: 20170927

REACTIONS (5)
  - Dysphagia [Unknown]
  - Ascites [Unknown]
  - Peritonitis [Fatal]
  - Upper gastrointestinal perforation [Fatal]
  - Decreased appetite [Unknown]

NARRATIVE: CASE EVENT DATE: 20171007
